FAERS Safety Report 16835294 (Version 1)
Quarter: 2019Q3

REPORT INFORMATION
  Report Type: Spontaneous
  Country: US (occurrence: US)
  Receive Date: 20190920
  Receipt Date: 20190920
  Transmission Date: 20191005
  Serious: Yes (Disabling, Other)
  Sender: FDA-Public Use
  Company Number: US-GLAXOSMITHKLINE-US2019169896

PATIENT
  Age: 47 Year
  Sex: Male

DRUGS (8)
  1. EPIVIR [Suspect]
     Active Substance: LAMIVUDINE
     Indication: HIV INFECTION
     Dosage: UNK
     Route: 065
     Dates: start: 200308
  2. MEPERIDINE HYDROCHLORIDE. [Concomitant]
     Active Substance: MEPERIDINE HYDROCHLORIDE
     Dosage: UNK
     Route: 065
     Dates: start: 200307
  3. LIPITOR [Concomitant]
     Active Substance: ATORVASTATIN CALCIUM
     Dosage: UNK
     Route: 065
  4. VIDEX [Suspect]
     Active Substance: DIDANOSINE
     Indication: HIV INFECTION
     Dosage: 350 MG
     Route: 065
  5. VIREAD [Suspect]
     Active Substance: TENOFOVIR DISOPROXIL FUMARATE
     Indication: HIV INFECTION
     Dosage: 300 MG
     Route: 065
     Dates: start: 200308
  6. NITROGLYCERIN. [Concomitant]
     Active Substance: NITROGLYCERIN
     Indication: PRODUCT USED FOR UNKNOWN INDICATION
     Dosage: UNK
     Route: 065
     Dates: start: 200307
  7. VIRACEPT [Suspect]
     Active Substance: NELFINAVIR MESYLATE
     Indication: HIV INFECTION
     Dosage: 1250 MG, BID
     Route: 048
  8. ZERIT [Suspect]
     Active Substance: STAVUDINE
     Indication: HIV INFECTION
     Dosage: UNK
     Route: 065
     Dates: end: 200308

REACTIONS (9)
  - Visual impairment [Unknown]
  - Fatigue [Unknown]
  - Balance disorder [Unknown]
  - Somnolence [Unknown]
  - Disturbance in attention [Unknown]
  - Ischaemia [Unknown]
  - Impaired work ability [Unknown]
  - Disorientation [Unknown]
  - Memory impairment [Unknown]
